FAERS Safety Report 25584945 (Version 1)
Quarter: 2025Q3

REPORT INFORMATION
  Report Type: Report from Study
  Country: GB (occurrence: GB)
  Receive Date: 20250721
  Receipt Date: 20250721
  Transmission Date: 20251021
  Serious: Yes (Other)
  Sender: AUROBINDO
  Company Number: GB-AUROBINDO-AUR-APL-2019-028562

PATIENT

DRUGS (4)
  1. RIBAVIRIN [Suspect]
     Active Substance: RIBAVIRIN
     Indication: Respiratory syncytial virus infection
     Route: 065
  2. RIBAVIRIN [Suspect]
     Active Substance: RIBAVIRIN
     Indication: Lower respiratory tract infection
  3. Immunglobulin [Concomitant]
     Indication: Respiratory syncytial virus infection
     Route: 042
  4. Immunglobulin [Concomitant]
     Indication: Lower respiratory tract infection

REACTIONS (2)
  - Haemolytic anaemia [Recovered/Resolved]
  - Off label use [Unknown]
